FAERS Safety Report 12795530 (Version 4)
Quarter: 2017Q1

REPORT INFORMATION
  Report Type: Report from Study
  Country: CA (occurrence: CA)
  Receive Date: 20160929
  Receipt Date: 20170216
  Transmission Date: 20170428
  Serious: Yes (Death, Other)
  Sender: FDA-Public Use
  Company Number: CA-BAYER-2016-179710

PATIENT
  Age: 78 Year
  Sex: Female

DRUGS (23)
  1. DEXILANT [Concomitant]
     Active Substance: DEXLANSOPRAZOLE
  2. LYRICA [Concomitant]
     Active Substance: PREGABALIN
  3. VENTOLIN [Concomitant]
     Active Substance: ALBUTEROL SULFATE
  4. SENOKOT [Concomitant]
     Active Substance: SENNOSIDES
  5. TEGRETOL [Concomitant]
     Active Substance: CARBAMAZEPINE
  6. STIVARGA [Suspect]
     Active Substance: REGORAFENIB
     Indication: COLORECTAL CANCER METASTATIC
     Dosage: 160 MG, QD
     Route: 048
     Dates: start: 20160912, end: 20160921
  7. BISOPROLOL [Concomitant]
     Active Substance: BISOPROLOL
  8. EZETIMIBE. [Concomitant]
     Active Substance: EZETIMIBE
  9. ESTRONE [Concomitant]
     Active Substance: ESTRONE
  10. CELEBREX [Concomitant]
     Active Substance: CELECOXIB
  11. SALBUTAMOL [Concomitant]
     Active Substance: ALBUTEROL
  12. NAPROSYN [Concomitant]
     Active Substance: NAPROXEN
     Dosage: UNK
  13. STIVARGA [Suspect]
     Active Substance: REGORAFENIB
     Indication: COLORECTAL CANCER METASTATIC
     Dosage: 80 MG, QD
     Route: 048
     Dates: start: 20161002, end: 20161021
  14. OXALIPLATIN. [Concomitant]
     Active Substance: OXALIPLATIN
     Dosage: UNK
     Dates: start: 201603, end: 201608
  15. LIPITOR [Concomitant]
     Active Substance: ATORVASTATIN CALCIUM
  16. CODEIN [Concomitant]
     Active Substance: CODEINE
  17. ROSUVASTATIN. [Concomitant]
     Active Substance: ROSUVASTATIN
  18. DEXAMETHASONE. [Concomitant]
     Active Substance: DEXAMETHASONE
     Indication: CATHETER SITE PAIN
  19. AAS [Concomitant]
     Active Substance: ASPIRIN
  20. IRON SULFATE [Concomitant]
     Active Substance: FERROUS SULFATE ANHYDROUS
  21. FENTANYL. [Concomitant]
     Active Substance: FENTANYL
  22. COLACE [Concomitant]
     Active Substance: DOCUSATE SODIUM
  23. CYCLOBENZAPRINE [Concomitant]
     Active Substance: CYCLOBENZAPRINE

REACTIONS (18)
  - Poor quality sleep [Not Recovered/Not Resolved]
  - Palmar-plantar erythrodysaesthesia syndrome [Recovering/Resolving]
  - Burning sensation [Recovering/Resolving]
  - Skin exfoliation [Recovering/Resolving]
  - Paraesthesia [None]
  - Death [Fatal]
  - Blood pressure systolic increased [Unknown]
  - Skin irritation [Recovering/Resolving]
  - Activities of daily living impaired [Recovering/Resolving]
  - Feeling cold [None]
  - Off label use [None]
  - Blood pressure systolic increased [Recovering/Resolving]
  - Gait disturbance [Recovering/Resolving]
  - Hyperkeratosis [Recovering/Resolving]
  - Colorectal cancer metastatic [None]
  - Palmar erythema [Recovering/Resolving]
  - Pain in extremity [Recovering/Resolving]
  - Dysphonia [Recovered/Resolved]

NARRATIVE: CASE EVENT DATE: 2016
